FAERS Safety Report 18976902 (Version 5)
Quarter: 2021Q3

REPORT INFORMATION
  Report Type: Report from Study
  Country: US (occurrence: US)
  Receive Date: 20210306
  Receipt Date: 20210901
  Transmission Date: 20211014
  Serious: No
  Sender: FDA-Public Use
  Company Number: NVSC2021US036972

PATIENT
  Age: 61 Year
  Sex: Female

DRUGS (3)
  1. METOPROLOL. [Concomitant]
     Active Substance: METOPROLOL
     Indication: PRODUCT USED FOR UNKNOWN INDICATION
     Dosage: 75 MG
     Route: 065
  2. ENTRESTO [Suspect]
     Active Substance: SACUBITRIL\VALSARTAN
     Indication: PRODUCT USED FOR UNKNOWN INDICATION
     Dosage: 1 DF, BID(24.26  MG)
     Route: 065
     Dates: start: 202012
  3. METOPROLOL. [Concomitant]
     Active Substance: METOPROLOL
     Dosage: 100 MG
     Route: 065

REACTIONS (7)
  - Gastritis [Unknown]
  - Heart rate increased [Unknown]
  - Ankle fracture [Recovering/Resolving]
  - Dyspnoea [Unknown]
  - Asthenia [Not Recovered/Not Resolved]
  - Weight fluctuation [Unknown]
  - Food craving [Unknown]

NARRATIVE: CASE EVENT DATE: 202012
